FAERS Safety Report 12576027 (Version 2)
Quarter: 2016Q3

REPORT INFORMATION
  Report Type: Spontaneous
  Country: JP (occurrence: JP)
  Receive Date: 20160720
  Receipt Date: 20160731
  Transmission Date: 20161109
  Serious: Yes (Other)
  Sender: FDA-Public Use
  Company Number: PHJP2016JP020426

PATIENT
  Age: 75 Year
  Sex: Male

DRUGS (4)
  1. PREDONINE [Suspect]
     Active Substance: PREDNISOLONE\PREDNISOLONE ACETATE\PREDNISOLONE SODIUM SUCCINATE
     Indication: PRODUCT USED FOR UNKNOWN INDICATION
     Dosage: 30 MG, UNK
     Route: 048
     Dates: end: 201607
  2. NEORAL [Suspect]
     Active Substance: CYCLOSPORINE
     Indication: NEUROMYOTONIA
     Dosage: 100 MG, UNK
     Route: 048
     Dates: start: 200602
  3. NEORAL [Suspect]
     Active Substance: CYCLOSPORINE
     Dosage: 125 MG, UNK
     Route: 048
     Dates: end: 201607
  4. NEORAL [Suspect]
     Active Substance: CYCLOSPORINE
     Dosage: 200 MG, UNK
     Route: 048
     Dates: start: 2008

REACTIONS (5)
  - Back pain [Recovered/Resolved]
  - Swelling [Recovered/Resolved]
  - Nocardiosis [Recovered/Resolved]
  - Fall [Unknown]
  - Back injury [Unknown]

NARRATIVE: CASE EVENT DATE: 201508
